FAERS Safety Report 18845114 (Version 1)
Quarter: 2021Q1

REPORT INFORMATION
  Report Type: Report from Study
  Country: US (occurrence: US)
  Receive Date: 20210203
  Receipt Date: 20210203
  Transmission Date: 20210419
  Serious: Yes (Hospitalization)
  Sender: FDA-Public Use
  Company Number: US-EXELIXIS-CABO-20029488

PATIENT
  Age: 56 Year
  Sex: Male

DRUGS (1)
  1. CABOMETYX [Suspect]
     Active Substance: CABOZANTINIB S-MALATE
     Indication: PRODUCT USED FOR UNKNOWN INDICATION
     Dosage: 40 MG, QD
     Route: 048
     Dates: start: 202004

REACTIONS (11)
  - Fatigue [Unknown]
  - Thrombosis [Unknown]
  - Diarrhoea [Unknown]
  - Pruritus [Unknown]
  - Blister [Unknown]
  - Rhinalgia [Unknown]
  - Nausea [Unknown]
  - Blood pressure increased [Unknown]
  - Dizziness [Unknown]
  - Taste disorder [Unknown]
  - Pulmonary embolism [Unknown]

NARRATIVE: CASE EVENT DATE: 20200513
